FAERS Safety Report 17458558 (Version 3)
Quarter: 2020Q1

REPORT INFORMATION
  Report Type: Spontaneous
  Country: ID (occurrence: ID)
  Receive Date: 20200225
  Receipt Date: 20200304
  Transmission Date: 20200409
  Serious: Yes (Death)
  Sender: FDA-Public Use
  Company Number: ID-SA-2020SA046763

PATIENT
  Age: 48 Year
  Sex: Male
  Weight: 74 kg

DRUGS (4)
  1. CODITAM [Concomitant]
     Dosage: 1 DF, TID
     Route: 048
     Dates: start: 2019, end: 2019
  2. GLIMEPIRIDE. [Suspect]
     Active Substance: GLIMEPIRIDE
     Indication: TYPE 2 DIABETES MELLITUS
     Route: 065
  3. AMARYL [Suspect]
     Active Substance: GLIMEPIRIDE
     Indication: TYPE 2 DIABETES MELLITUS
     Dosage: 4 MG, QD
     Route: 048
     Dates: start: 2015
  4. GLUCOPHAGE [Concomitant]
     Active Substance: METFORMIN HYDROCHLORIDE
     Indication: TYPE 2 DIABETES MELLITUS
     Dosage: 500 MG, TID
     Route: 048
     Dates: start: 2012, end: 2019

REACTIONS (2)
  - Multi-organ disorder [Fatal]
  - Inability to afford medication [Unknown]
